FAERS Safety Report 11624611 (Version 2)
Quarter: 2015Q4

REPORT INFORMATION
  Report Type: Spontaneous
  Country: IT (occurrence: IT)
  Receive Date: 20151013
  Receipt Date: 20151110
  Transmission Date: 20160304
  Serious: Yes (Death)
  Sender: FDA-Public Use
  Company Number: IT-SUN PHARMACEUTICAL INDUSTRIES LTD-2015RR-104236

PATIENT

DRUGS (2)
  1. CARBOPLATIN. [Suspect]
     Active Substance: CARBOPLATIN
     Indication: LUNG ADENOCARCINOMA METASTATIC
     Dosage: UNK
     Route: 042
     Dates: start: 20150617, end: 20150730
  2. PEMETREXED [Suspect]
     Active Substance: PEMETREXED
     Indication: LUNG ADENOCARCINOMA METASTATIC
     Dosage: 500 ?G/M2, CYCLICAL
     Route: 042
     Dates: start: 20150617, end: 20150730

REACTIONS (3)
  - Septic shock [Fatal]
  - Febrile neutropenia [None]
  - Enterobacter infection [None]

NARRATIVE: CASE EVENT DATE: 20150811
